FAERS Safety Report 9830415 (Version 1)
Quarter: 2014Q1

REPORT INFORMATION
  Report Type: Spontaneous
  Country: US (occurrence: US)
  Receive Date: 20140120
  Receipt Date: 20140120
  Transmission Date: 20141002
  Serious: Yes (Other)
  Sender: FDA-Public Use
  Company Number: US-BAYER-2014-009600

PATIENT
  Age: 30 Year
  Sex: Female

DRUGS (2)
  1. YAZ [Suspect]
  2. TRIAZOLAM [Concomitant]
     Dosage: 0.25 MG, UNK
     Dates: start: 20100516

REACTIONS (1)
  - Deep vein thrombosis [Recovered/Resolved]
